FAERS Safety Report 9221970 (Version 1)
Quarter: 2013Q1

REPORT INFORMATION
  Report Type: Spontaneous
  Country: US (occurrence: None)
  Receive Date: 20120913
  Receipt Date: 20120913
  Transmission Date: 20140127
  Serious: Yes (Other)
  Sender: FDA-Public Use
  Company Number: PHEH2012US013701

PATIENT
  Age: 19 Year
  Sex: Female

DRUGS (1)
  1. EXTAVIA [Suspect]
     Indication: MULTIPLE SCLEROSIS
     Route: 050

REACTIONS (5)
  - Multiple sclerosis relapse [None]
  - Stress [None]
  - Blindness [None]
  - Limb discomfort [None]
  - Asthenia [None]
